FAERS Safety Report 18429223 (Version 2)
Quarter: 2022Q2

REPORT INFORMATION
  Report Type: Spontaneous
  Country: US (occurrence: US)
  Receive Date: 20201026
  Receipt Date: 20220401
  Transmission Date: 20220721
  Serious: No
  Sender: FDA-Public Use
  Company Number: US-PFIZER INC-2020413916

PATIENT
  Age: 61 Year
  Sex: Female

DRUGS (3)
  1. IBRANCE [Suspect]
     Active Substance: PALBOCICLIB
     Indication: Breast cancer female
     Dosage: 75 MG, CYCLIC, (75 MG QD (ONCE A DAY) X 21 DAYS Q (EVERY) 28 DAYS)
     Dates: start: 20200804
  2. IBRANCE [Suspect]
     Active Substance: PALBOCICLIB
     Indication: Aromatase inhibition therapy
     Dosage: 75 MG, DAILY FOR 21 DAYS
     Route: 048
     Dates: start: 20210313
  3. IBRANCE [Suspect]
     Active Substance: PALBOCICLIB
     Dosage: 75 MG, CYCLIC (QD X 21 DAYS)
     Dates: start: 20210312

REACTIONS (6)
  - Product dose omission in error [Unknown]
  - Dry skin [Recovered/Resolved]
  - Skin exfoliation [Recovered/Resolved]
  - Paraesthesia [Not Recovered/Not Resolved]
  - Fatigue [Unknown]
  - Alopecia [Unknown]

NARRATIVE: CASE EVENT DATE: 20200903
